FAERS Safety Report 20489337 (Version 1)
Quarter: 2022Q1

REPORT INFORMATION
  Report Type: Report from Study
  Country: US (occurrence: US)
  Receive Date: 20220218
  Receipt Date: 20220218
  Transmission Date: 20220423
  Serious: No
  Sender: FDA-Public Use
  Company Number: US-BIOVITRUM-2022US00117

PATIENT
  Sex: Female

DRUGS (3)
  1. SYNAGIS [Suspect]
     Active Substance: PALIVIZUMAB
     Indication: Antiviral prophylaxis
     Route: 030
  2. VITAMINS [Concomitant]
     Active Substance: VITAMINS
  3. VITAMINS [Concomitant]
     Active Substance: VITAMINS

REACTIONS (4)
  - COVID-19 [Unknown]
  - Fibrinous bronchitis [Unknown]
  - Pyrexia [Unknown]
  - Product dose omission issue [Unknown]
